FAERS Safety Report 6153507-3 (Version None)
Quarter: 2009Q2

REPORT INFORMATION
  Report Type: 
  Country: None (occurrence: None)
  Receive Date: 20090413
  Receipt Date: 20090406
  Transmission Date: 20091009
  Serious: Yes (Hospitalization)
  Sender: FDA-Public Use
  Company Number: PHHY2009JP13206

PATIENT

DRUGS (2)
  1. LOCHOL [Suspect]
     Indication: HYPERCHOLESTEROLAEMIA
     Dosage: 20 MG DAILY
     Route: 048
  2. LOCHOL [Suspect]
     Dosage: 30 MG DAILY
     Route: 048
     Dates: start: 20090301

REACTIONS (3)
  - BLOOD CREATINE PHOSPHOKINASE INCREASED [None]
  - CREATININE RENAL CLEARANCE DECREASED [None]
  - HYPERCHOLESTEROLAEMIA [None]
